FAERS Safety Report 7107447-3 (Version None)
Quarter: 2010Q4

REPORT INFORMATION
  Report Type: 
  Country: None (occurrence: None)
  Receive Date: 20101109
  Receipt Date: 20101101
  Transmission Date: 20110411
  Serious: Yes (Other)
  Sender: FDA-Public Use
  Company Number: 2010SP054297

PATIENT
  Age: 60 Year
  Sex: Male

DRUGS (6)
  1. INTEGRILIN [Suspect]
     Indication: PRODUCT USED FOR UNKNOWN INDICATION
     Dates: start: 20100907
  2. IODINE (IODINE) [Suspect]
     Indication: PRODUCT USED FOR UNKNOWN INDICATION
     Dates: start: 20100907
  3. PLAVIX [Concomitant]
  4. REOPRO [Concomitant]
  5. ASPIRIN [Concomitant]
  6. HEPARIN [Concomitant]

REACTIONS (3)
  - DRUG HYPERSENSITIVITY [None]
  - TYPE IV HYPERSENSITIVITY REACTION [None]
  - URTICARIA [None]
